FAERS Safety Report 4324939-0 (Version None)
Quarter: 2004Q1

REPORT INFORMATION
  Report Type: 
  Country: None (occurrence: None)
  Receive Date: 20040325
  Receipt Date: 20040325
  Transmission Date: 20041129
  Serious: Yes (Life-Threatening)
  Sender: FDA-Public Use
  Company Number: None

PATIENT
  Sex: Female
  Weight: 58.9676 kg

DRUGS (2)
  1. SERZONE [Suspect]
     Indication: NERVOUS SYSTEM DISORDER
     Dosage: 200 MG 3 TIMES DAILY
     Dates: start: 20040307
  2. SERZONE [Suspect]
     Indication: NERVOUS SYSTEM DISORDER
     Dosage: 200 MG 3 TIMES DAILY
     Dates: start: 20040316

REACTIONS (3)
  - DEPRESSION [None]
  - INCOHERENT [None]
  - PHARMACEUTICAL PRODUCT COMPLAINT [None]
